FAERS Safety Report 14782427 (Version 2)
Quarter: 2018Q2

REPORT INFORMATION
  Report Type: Spontaneous
  Country: US (occurrence: US)
  Receive Date: 20180420
  Receipt Date: 20180424
  Transmission Date: 20180711
  Serious: No
  Sender: FDA-Public Use
  Company Number: US-PFIZER INC-2018160891

PATIENT
  Age: 72 Year
  Sex: Female

DRUGS (1)
  1. ZOLOFT [Suspect]
     Active Substance: SERTRALINE HYDROCHLORIDE
     Dosage: 100 MG, 1X/DAY
     Dates: start: 201803

REACTIONS (2)
  - Sinus congestion [Unknown]
  - Amnesia [Unknown]
